FAERS Safety Report 14309597 (Version 2)
Quarter: 2017Q4

REPORT INFORMATION
  Report Type: Spontaneous
  Country: DE (occurrence: DE)
  Receive Date: 20171220
  Receipt Date: 20171220
  Transmission Date: 20180321
  Serious: Yes (Other)
  Sender: FDA-Public Use
  Company Number: PHHY2017DE181804

PATIENT
  Age: 30 Year
  Sex: Male

DRUGS (12)
  1. PREDNISOLONE. [Suspect]
     Active Substance: PREDNISOLONE
     Indication: CENTRAL NERVOUS SYSTEM HAEMORRHAGE
  2. ANTI-D [Suspect]
     Active Substance: HUMAN RHO(D) IMMUNE GLOBULIN
     Indication: IMMUNE THROMBOCYTOPENIC PURPURA
     Dosage: UNK
     Route: 065
  3. DAPSONE. [Suspect]
     Active Substance: DAPSONE
     Indication: CENTRAL NERVOUS SYSTEM HAEMORRHAGE
  4. DAPSONE. [Suspect]
     Active Substance: DAPSONE
     Indication: IMMUNE THROMBOCYTOPENIC PURPURA
     Dosage: UNK
     Route: 065
  5. ROMIPLOSTIM [Suspect]
     Active Substance: ROMIPLOSTIM
     Indication: IMMUNE THROMBOCYTOPENIC PURPURA
     Route: 065
  6. PREDNISOLONE. [Suspect]
     Active Substance: PREDNISOLONE
     Indication: IMMUNE THROMBOCYTOPENIC PURPURA
     Dosage: UNK
     Route: 065
  7. AZATHIOPRINE. [Suspect]
     Active Substance: AZATHIOPRINE
     Indication: CENTRAL NERVOUS SYSTEM HAEMORRHAGE
  8. ROMIPLOSTIM [Suspect]
     Active Substance: ROMIPLOSTIM
     Indication: CENTRAL NERVOUS SYSTEM HAEMORRHAGE
  9. DANAZOL. [Suspect]
     Active Substance: DANAZOL
     Indication: CENTRAL NERVOUS SYSTEM HAEMORRHAGE
  10. AZATHIOPRINE. [Suspect]
     Active Substance: AZATHIOPRINE
     Indication: IMMUNE THROMBOCYTOPENIC PURPURA
     Dosage: UNK
     Route: 065
  11. ANTI-D [Suspect]
     Active Substance: HUMAN RHO(D) IMMUNE GLOBULIN
     Indication: CENTRAL NERVOUS SYSTEM HAEMORRHAGE
  12. DANAZOL. [Suspect]
     Active Substance: DANAZOL
     Indication: IMMUNE THROMBOCYTOPENIC PURPURA
     Dosage: UNK
     Route: 065

REACTIONS (1)
  - Mucosal haemorrhage [Recovered/Resolved]
